FAERS Safety Report 6031527-7 (Version None)
Quarter: 2008Q4

REPORT INFORMATION
  Report Type: 
  Country: None (occurrence: None)
  Receive Date: 20081224
  Receipt Date: 20080304
  Transmission Date: 20090506
  Serious: Yes (Other)
  Sender: FDA-Public Use
  Company Number: FEI2008-0153

PATIENT
  Age: 27 Year
  Sex: Female
  Weight: 64.8644 kg

DRUGS (5)
  1. PARAGARD T 380A [Suspect]
     Indication: CONTRACEPTION
     Dosage: INTRA-UTERINE
     Route: 015
     Dates: start: 20070228, end: 20080124
  2. AMITIZA [Concomitant]
  3. PROZAC [Concomitant]
  4. LAMISIL (TERBINAFINE) [Concomitant]
  5. PHENTERMINE [Concomitant]

REACTIONS (2)
  - ABORTION SPONTANEOUS [None]
  - UNINTENDED PREGNANCY [None]
